FAERS Safety Report 12105403 (Version 11)
Quarter: 2017Q1

REPORT INFORMATION
  Report Type: Report from Study
  Country: BR (occurrence: BR)
  Receive Date: 20160223
  Receipt Date: 20170310
  Transmission Date: 20170428
  Serious: Yes (Life-Threatening, Hospitalization, Other)
  Sender: FDA-Public Use
  Company Number: PHHY2016BR009250

PATIENT
  Age: 85 Year
  Sex: Male
  Weight: 80 kg

DRUGS (2)
  1. EXJADE [Suspect]
     Active Substance: DEFERASIROX
     Dosage: 1000 MG, QD
     Route: 048
  2. EXJADE [Suspect]
     Active Substance: DEFERASIROX
     Indication: MYELODYSPLASTIC SYNDROME
     Dosage: 15 MG/KG, QD (2 DF OF 500 MG)
     Route: 048
     Dates: start: 20120520

REACTIONS (24)
  - Deafness unilateral [Not Recovered/Not Resolved]
  - Pneumonia [Recovered/Resolved]
  - Asthenia [Recovered/Resolved]
  - Back pain [Recovered/Resolved]
  - Nausea [Recovered/Resolved]
  - Bone marrow disorder [Unknown]
  - Dysstasia [Not Recovered/Not Resolved]
  - Pruritus [Recovered/Resolved]
  - Hypoglycaemia [Unknown]
  - Gait disturbance [Unknown]
  - Spinal pain [Unknown]
  - Malaise [Unknown]
  - Abasia [Unknown]
  - Urinary tract infection [Recovering/Resolving]
  - Osteoarthritis [Unknown]
  - Weight decreased [Not Recovered/Not Resolved]
  - Arthralgia [Unknown]
  - Fatigue [Recovered/Resolved]
  - Diabetes mellitus [Unknown]
  - Influenza [Unknown]
  - Serum ferritin increased [Unknown]
  - Back pain [Unknown]
  - Vomiting [Recovered/Resolved]
  - Inappropriate schedule of drug administration [Unknown]

NARRATIVE: CASE EVENT DATE: 201601
